FAERS Safety Report 6760237-3 (Version None)
Quarter: 2010Q2

REPORT INFORMATION
  Report Type: 
  Country: None (occurrence: None)
  Receive Date: 20100608
  Receipt Date: 20010402
  Transmission Date: 20101027
  Serious: No
  Sender: FDA-Public Use
  Company Number: 2001SUS0300

PATIENT
  Age: 26 Year
  Sex: Female

DRUGS (6)
  1. SUSTIVA [Suspect]
     Indication: HIV INFECTION
     Dosage: 600 MG AES#DOSE_FREQUENCY: DLY
     Route: 048
     Dates: start: 19990201, end: 19990801
  2. NELFINAVIR [Suspect]
     Indication: HIV INFECTION
     Dosage: 2500 MG AES#DOSE_FREQUENCY: DLY
     Route: 048
     Dates: start: 19990823
  3. LAMIVUDINE + ZIDOVUDINE [Suspect]
     Indication: HIV INFECTION
     Dosage: 2 DLY
     Route: 048
  4. COCAINE [Concomitant]
  5. HEROIN [Concomitant]
  6. NORPLANT [Concomitant]
     Dosage: UNK UNK
     Route: 023
     Dates: end: 19990501

REACTIONS (1)
  - PREGNANCY [None]
